FAERS Safety Report 5746219-9 (Version None)
Quarter: 2008Q2

REPORT INFORMATION
  Report Type: 
  Country: None (occurrence: None)
  Receive Date: 20080522
  Receipt Date: 20080513
  Transmission Date: 20081010
  Serious: Yes (Other)
  Sender: FDA-Public Use
  Company Number: US-ROCHE-524465

PATIENT
  Sex: Female
  Weight: 64 kg

DRUGS (2)
  1. ACCUTANE [Suspect]
     Indication: ACNE
     Dosage: THE PATIENT WAS PRESCRIBED ACCUTANE ON ON 04 SEPTEMBER 2007.
     Route: 048
     Dates: start: 20070904, end: 20070916
  2. SOTRET [Suspect]
     Dosage: THE PATIENT WAS ON SOTRET FOR SEVERAL MONTHS
     Route: 065

REACTIONS (2)
  - ADVERSE REACTION [None]
  - SUICIDAL IDEATION [None]
